FAERS Safety Report 6826934-6 (Version None)
Quarter: 2010Q3

REPORT INFORMATION
  Report Type: 
  Country: None (occurrence: None)
  Receive Date: 20100709
  Receipt Date: 20100629
  Transmission Date: 20110219
  Serious: Yes (Hospitalization)
  Sender: FDA-Public Use
  Company Number: US-JNJFOC-20100510347

PATIENT
  Sex: Female
  Weight: 49.9 kg

DRUGS (6)
  1. REMICADE [Suspect]
     Indication: ANKYLOSING SPONDYLITIS
     Dosage: 5MG/KG PER VIAL.
     Route: 042
  2. REMICADE [Suspect]
     Route: 042
  3. REMICADE [Suspect]
     Indication: RHEUMATOID ARTHRITIS
     Route: 042
  4. REMICADE [Suspect]
     Dosage: 5MG/KG PER VIAL.
     Route: 042
  5. CELEBREX [Concomitant]
     Indication: PAIN
     Route: 065
  6. LOESTRIN 1.5/30 [Concomitant]
     Indication: HEADACHE
     Route: 065

REACTIONS (8)
  - ABDOMINAL PAIN UPPER [None]
  - ARTHRALGIA [None]
  - ASTHENIA [None]
  - DIZZINESS [None]
  - FATIGUE [None]
  - HEADACHE [None]
  - LYMPHADENOPATHY [None]
  - MYALGIA [None]
